FAERS Safety Report 7203652-6 (Version None)
Quarter: 2010Q4

REPORT INFORMATION
  Report Type: 
  Country: None (occurrence: None)
  Receive Date: 20101228
  Receipt Date: 20101228
  Transmission Date: 20110411
  Serious: Yes (Life-Threatening, Hospitalization)
  Sender: FDA-Public Use
  Company Number: None

PATIENT
  Age: 57 Year
  Sex: Male
  Weight: 68.0396 kg

DRUGS (2)
  1. BARACLUDE [Suspect]
     Indication: HEPATIC ENZYME INCREASED
     Dates: start: 20101027, end: 20101127
  2. BARACLUDE [Suspect]
     Indication: VIRAL HEPATITIS CARRIER
     Dates: start: 20101027, end: 20101127

REACTIONS (1)
  - LIVER INJURY [None]
